FAERS Safety Report 5848880-7 (Version None)
Quarter: 2008Q3

REPORT INFORMATION
  Report Type: 
  Country: None (occurrence: None)
  Receive Date: 20080818
  Receipt Date: 20080806
  Transmission Date: 20090109
  Serious: Yes (Other)
  Sender: FDA-Public Use
  Company Number: JP-PFIZER INC-2008066252

PATIENT
  Age: 67 Year
  Sex: Female

DRUGS (4)
  1. ZITHROMAX [Suspect]
     Indication: PYREXIA
     Route: 048
     Dates: start: 20080526, end: 20080526
  2. VEGETAMIN [Concomitant]
     Route: 048
  3. AMLODIPINE BESYLATE [Concomitant]
     Route: 048
  4. BIPERIDEN HYDROCHLORIDE TAB [Concomitant]
     Route: 048

REACTIONS (1)
  - SHOCK [None]
